FAERS Safety Report 20906520 (Version 1)
Quarter: 2022Q2

REPORT INFORMATION
  Report Type: Spontaneous
  Country: US (occurrence: US)
  Receive Date: 20220602
  Receipt Date: 20220602
  Transmission Date: 20220721
  Serious: No
  Sender: FDA-Public Use
  Company Number: US-TEVA-2022-US-2034621

PATIENT
  Age: 68 Year
  Sex: Male
  Weight: 86.18 kg

DRUGS (2)
  1. AJOVY [Suspect]
     Active Substance: FREMANEZUMAB-VFRM
     Indication: Migraine
     Dosage: 225 MG / 1.5 ML
     Route: 065
  2. UBRELVY [Concomitant]
     Active Substance: UBROGEPANT

REACTIONS (6)
  - Injection site extravasation [Unknown]
  - Injection site vesicles [Unknown]
  - Injection site swelling [Unknown]
  - Incorrect dose administered by device [Unknown]
  - Device deployment issue [Unknown]
  - Accidental exposure to product [Unknown]
